FAERS Safety Report 19769025 (Version 2)
Quarter: 2021Q3

REPORT INFORMATION
  Report Type: Spontaneous
  Country: US (occurrence: US)
  Receive Date: 20210831
  Receipt Date: 20210929
  Transmission Date: 20211014
  Serious: Yes (Hospitalization)
  Sender: FDA-Public Use
  Company Number: US-GW PHARMA-202108USGW04151

PATIENT

DRUGS (1)
  1. EPIDIOLEX [Suspect]
     Active Substance: CANNABIDIOL
     Indication: EPILEPSY
     Dosage: 25.94 MG/KG/DAY, 200 MILLIGRAM, BID (50 MG AS NEEDED FOR BREAKTHROUGH SEIZURE)
     Route: 048
     Dates: start: 20190419

REACTIONS (4)
  - COVID-19 [Unknown]
  - Prescribed overdose [Unknown]
  - Respiratory syncytial virus infection [Recovered/Resolved]
  - Product administered to patient of inappropriate age [Unknown]

NARRATIVE: CASE EVENT DATE: 20210816
